FAERS Safety Report 16515702 (Version 2)
Quarter: 2019Q3

REPORT INFORMATION
  Report Type: Spontaneous
  Country: CN (occurrence: CN)
  Receive Date: 20190702
  Receipt Date: 20190704
  Transmission Date: 20191004
  Serious: Yes (Other)
  Sender: FDA-Public Use
  Company Number: CN-ASTRAZENECA-2019SE93108

PATIENT
  Age: 90 Year
  Sex: Female

DRUGS (1)
  1. OSIMERTINIB MESILATE [Suspect]
     Active Substance: OSIMERTINIB
     Indication: LUNG ADENOCARCINOMA
     Route: 048
     Dates: start: 201905

REACTIONS (1)
  - Malignant neoplasm progression [Not Recovered/Not Resolved]
